FAERS Safety Report 7582915-9 (Version None)
Quarter: 2011Q2

REPORT INFORMATION
  Report Type: 
  Country: None (occurrence: None)
  Receive Date: 20110630
  Receipt Date: 20110622
  Transmission Date: 20111010
  Serious: Yes (Other)
  Sender: FDA-Public Use
  Company Number: IE-PFIZER INC-2011139426

PATIENT
  Age: 35 Year
  Sex: Female
  Weight: 120 kg

DRUGS (6)
  1. EFFEXOR [Concomitant]
     Indication: DEPRESSION
     Dosage: 75 MG, UNK
     Route: 048
  2. MICARDIS [Concomitant]
     Indication: HYPERTENSION
     Dosage: 40 MG, UNK
     Route: 048
  3. NEBIVOLOL HCL [Concomitant]
     Indication: HYPERTENSION
     Dosage: 5 MG, UNK
     Route: 048
  4. ZOLPIDEM TARTRATE [Concomitant]
     Dosage: 10 MG, UNK
  5. LYRICA [Suspect]
     Indication: POSTOPERATIVE ANALGESIA
     Dosage: 150 MG, UNK
     Route: 048
     Dates: start: 20110521, end: 20110523
  6. INDAPAMIDE [Concomitant]
     Indication: HYPERTENSION
     Dosage: 1.5 MG, UNK
     Route: 048

REACTIONS (4)
  - DIARRHOEA [None]
  - TACHYCARDIA [None]
  - ABDOMINAL PAIN [None]
  - FLATULENCE [None]
